FAERS Safety Report 5358015-5 (Version None)
Quarter: 2007Q2

REPORT INFORMATION
  Report Type: 
  Country: None (occurrence: None)
  Receive Date: 20070530
  Receipt Date: 20061205
  Transmission Date: 20071010
  Serious: Yes (Other)
  Sender: FDA-Public Use
  Company Number: US200612000671

PATIENT
  Age: 32 Year
  Sex: Female

DRUGS (5)
  1. ZYPREXA [Suspect]
     Dosage: 20 MG, DAILY (1/D)
     Dates: start: 19960101, end: 20050101
  2. ZYPREXA [Suspect]
     Dosage: 20 MG, DAILY (1/D)
     Dates: start: 20060701
  3. EZETIMIBE [Concomitant]
  4. SIMVASTATIN [Concomitant]
  5. HYDROCHLORZIDE (HYDROCHLOROTHIAZIDE) [Concomitant]

REACTIONS (7)
  - CHEST PAIN [None]
  - DISCOMFORT [None]
  - FATIGUE [None]
  - GENERAL PHYSICAL CONDITION ABNORMAL [None]
  - HAND DEFORMITY [None]
  - PAIN IN EXTREMITY [None]
  - WEIGHT INCREASED [None]
